FAERS Safety Report 24060580 (Version 2)
Quarter: 2024Q3

REPORT INFORMATION
  Report Type: Spontaneous
  Country: US (occurrence: US)
  Receive Date: 20240708
  Receipt Date: 20240711
  Transmission Date: 20241016
  Serious: No
  Sender: AMGEN
  Company Number: US-AMGEN-USASP2024131443

PATIENT
  Sex: Female

DRUGS (1)
  1. RAVICTI [Suspect]
     Active Substance: GLYCEROL PHENYLBUTYRATE
     Indication: Argininosuccinate lyase deficiency
     Dosage: 3 MILLILITER, TID, WITH MEAL
     Route: 048

REACTIONS (1)
  - Off label use [Unknown]
